FAERS Safety Report 6407293-X (Version None)
Quarter: 2009Q4

REPORT INFORMATION
  Report Type: 
  Country: None (occurrence: None)
  Receive Date: 20091020
  Receipt Date: 20091015
  Transmission Date: 20100525
  Serious: Yes (Death)
  Sender: FDA-Public Use
  Company Number: A0812249A

PATIENT
  Age: 49 Year
  Sex: Female

DRUGS (7)
  1. TYKERB [Suspect]
     Dosage: 250MG FIVE TIMES PER DAY
     Route: 048
     Dates: start: 20070601, end: 20081201
  2. PACLITAXEL [Concomitant]
  3. ADRIAMYCIN PFS [Concomitant]
  4. TRASTUZUMAB [Concomitant]
  5. BONDRONAT [Concomitant]
  6. XELODA [Concomitant]
  7. CYCLOPHOSPHAMIDE [Concomitant]

REACTIONS (3)
  - DIARRHOEA [None]
  - NEOPLASM MALIGNANT [None]
  - PALMAR-PLANTAR ERYTHRODYSAESTHESIA SYNDROME [None]
